FAERS Safety Report 15693217 (Version 1)
Quarter: 2018Q4

REPORT INFORMATION
  Report Type: Spontaneous
  Country: US (occurrence: US)
  Receive Date: 20181206
  Receipt Date: 20181206
  Transmission Date: 20190205
  Serious: Yes (Life-Threatening)
  Sender: FDA-Public Use
  Company Number: US-HIKMA PHARMACEUTICALS USA INC.-US-H14001-18-08625

PATIENT
  Age: 47 Year
  Sex: Male

DRUGS (3)
  1. TRENBOLONE ACETATE [Suspect]
     Active Substance: TRENBOLONE ACETATE
     Indication: PRODUCT USED FOR UNKNOWN INDICATION
     Dosage: 3 TIMES A WEEK
     Route: 065
  2. DROSTANOLONE PROPRIONATE [Suspect]
     Active Substance: DROMOSTANOLONE PROPIONATE
     Indication: PRODUCT USED FOR UNKNOWN INDICATION
     Dosage: 3 TIMES A WEEK
     Route: 065
  3. TESTOSTERONE CYPIONATE. [Suspect]
     Active Substance: TESTOSTERONE CYPIONATE
     Indication: PRODUCT USED FOR UNKNOWN INDICATION
     Dosage: 3 TIMES A WEEK
     Route: 065

REACTIONS (1)
  - Diffuse alveolar damage [Recovered/Resolved]
